FAERS Safety Report 6170884-8 (Version None)
Quarter: 2009Q2

REPORT INFORMATION
  Report Type: 
  Country: None (occurrence: None)
  Receive Date: 20090427
  Receipt Date: 20090413
  Transmission Date: 20091009
  Serious: Yes (Hospitalization)
  Sender: FDA-Public Use
  Company Number: 2009SP000966

PATIENT
  Age: 66 Year
  Sex: Female

DRUGS (12)
  1. BROVANA [Suspect]
     Dosage: 15 UG/2ML; BID; INHALATION
     Route: 055
     Dates: start: 20090201
  2. XOPENEX [Suspect]
     Dosage: 0.63 MG/3ML; PRN; INHALATION
     Route: 055
  3. BUDESONIDE [Suspect]
     Dosage: INHALATION
     Route: 055
     Dates: start: 20090201
  4. LANOXIN [Concomitant]
  5. PREDNISONE [Concomitant]
  6. WARFARIN [Concomitant]
  7. FAMOTIDINE [Concomitant]
  8. VENTOLIN HFA [Concomitant]
  9. METHIMAZOLE [Concomitant]
  10. KENALOG [Concomitant]
  11. DIURETICS [Concomitant]
  12. SPIRIVA [Concomitant]

REACTIONS (2)
  - DRUG HYPERSENSITIVITY [None]
  - HEART RATE IRREGULAR [None]
